FAERS Safety Report 22236017 (Version 1)
Quarter: 2023Q2

REPORT INFORMATION
  Report Type: Report from Study
  Country: US (occurrence: US)
  Receive Date: 20230420
  Receipt Date: 20230420
  Transmission Date: 20230722
  Serious: Yes (Other)
  Sender: FDA-Public Use
  Company Number: US-BAYER-2023A050482

PATIENT
  Sex: Female

DRUGS (2)
  1. ASPIRIN [Suspect]
     Active Substance: ASPIRIN
     Indication: Antiphospholipid syndrome
     Dosage: UNK
  2. ENOXAPARIN SODIUM [Concomitant]
     Active Substance: ENOXAPARIN SODIUM
     Indication: Postpartum venous thrombosis
     Dosage: 30 MG, QD

REACTIONS (5)
  - Postpartum haemorrhage [None]
  - Labelled drug-drug interaction medication error [None]
  - Off label use [None]
  - Maternal exposure during pregnancy [None]
  - Contraindicated product administered [None]
